FAERS Safety Report 17603043 (Version 2)
Quarter: 2020Q3

REPORT INFORMATION
  Report Type: Report from Study
  Country: None (occurrence: US)
  Receive Date: 20200330
  Receipt Date: 20200704
  Transmission Date: 20201102
  Serious: Yes (Other)
  Sender: FDA-Public Use
  Company Number: US-ABBVIE-19K-163-3199971-00

PATIENT
  Age: 56 Year
  Sex: Female
  Weight: 72.64 kg

DRUGS (1)
  1. HUMIRA [Suspect]
     Active Substance: ADALIMUMAB
     Indication: HIDRADENITIS
     Dosage: CITRATE FREE
     Route: 058
     Dates: start: 2017, end: 202003

REACTIONS (6)
  - Lymphadenectomy [Unknown]
  - Facial paralysis [Unknown]
  - Squamous cell carcinoma of the oral cavity [Recovered/Resolved]
  - Lip and/or oral cavity cancer [Recovered/Resolved]
  - Tongue neoplasm malignant stage unspecified [Recovered/Resolved]
  - Muscular weakness [Unknown]

NARRATIVE: CASE EVENT DATE: 20191001
